FAERS Safety Report 8941578 (Version 1)
Quarter: 2012Q4

REPORT INFORMATION
  Report Type: 
  Country: US (occurrence: US)
  Receive Date: 20121203
  Receipt Date: 20121203
  Transmission Date: 20130627
  Serious: No
  Sender: FDA-Public Use
  Company Number: US-BAYER-2012-122556

PATIENT
  Age: 70 Year
  Sex: Male

DRUGS (1)
  1. BETAPACE [Suspect]
     Indication: AFIB
     Dosage: 180 mg, BID

REACTIONS (1)
  - Arrhythmia [None]
